FAERS Safety Report 7046842-8 (Version None)
Quarter: 2010Q4

REPORT INFORMATION
  Report Type: 
  Country: None (occurrence: None)
  Receive Date: 20101015
  Receipt Date: 20101006
  Transmission Date: 20110411
  Serious: Yes (Other)
  Sender: FDA-Public Use
  Company Number: US-JNJFOC-20101002100

PATIENT
  Sex: Female
  Weight: 93.44 kg

DRUGS (4)
  1. STELARA [Suspect]
     Indication: PSORIATIC ARTHROPATHY
     Route: 058
  2. STELARA [Suspect]
     Indication: PSORIASIS
     Route: 058
  3. PREVACID [Concomitant]
     Indication: GASTROOESOPHAGEAL REFLUX DISEASE
  4. DARVOCET [Concomitant]
     Indication: PAIN

REACTIONS (3)
  - PHLEBITIS SUPERFICIAL [None]
  - PSORIASIS [None]
  - THROMBOSIS [None]
